FAERS Safety Report 10193086 (Version 3)
Quarter: 2014Q3

REPORT INFORMATION
  Report Type: Spontaneous
  Country: US (occurrence: US)
  Receive Date: 20140524
  Receipt Date: 20140919
  Transmission Date: 20150326
  Serious: Yes (Hospitalization, Other)
  Sender: FDA-Public Use
  Company Number: US-TEVA-482840USA

PATIENT
  Age: 83 Year
  Sex: Female
  Weight: 63.56 kg

DRUGS (6)
  1. SYNTHROID [Suspect]
     Active Substance: LEVOTHYROXINE SODIUM
     Indication: HYPOTHYROIDISM
     Route: 065
  2. WARFARIN [Suspect]
     Active Substance: WARFARIN
     Route: 065
  3. LISINOPRIL. [Suspect]
     Active Substance: LISINOPRIL
     Indication: HYPERTENSION
     Route: 065
  4. METOPROLOL [Concomitant]
     Active Substance: METOPROLOL
     Dosage: 12.5 MILLIGRAM DAILY;
  5. ZOCOR [Suspect]
     Active Substance: SIMVASTATIN
     Route: 065
  6. TIKOSYN [Suspect]
     Active Substance: DOFETILIDE
     Indication: ATRIAL FIBRILLATION
     Dosage: 250 MICROGRAM DAILY;
     Route: 048
     Dates: start: 20140425, end: 20140527

REACTIONS (15)
  - Cardiac ablation [Unknown]
  - Heart rate increased [Unknown]
  - Heart rate abnormal [Unknown]
  - Heart rate decreased [Unknown]
  - Hypothyroidism [Unknown]
  - Blood pressure systolic increased [Unknown]
  - Hyperthyroidism [Unknown]
  - Drug level decreased [Unknown]
  - Heart rate decreased [Unknown]
  - Cardiac flutter [Unknown]
  - Gait disturbance [Unknown]
  - Atrial fibrillation [Unknown]
  - Psychomotor hyperactivity [Unknown]
  - Joint warmth [Unknown]
  - Arthralgia [Unknown]

NARRATIVE: CASE EVENT DATE: 2014
